FAERS Safety Report 8500743-4 (Version None)
Quarter: 2012Q3

REPORT INFORMATION
  Report Type: 
  Country: None (occurrence: None)
  Receive Date: 20120710
  Receipt Date: 20120625
  Transmission Date: 20120928
  Serious: Yes (Hospitalization)
  Sender: FDA-Public Use
  Company Number: SE-ROCHE-1022560

PATIENT
  Age: 63 Year
  Sex: Male

DRUGS (4)
  1. GANCICLOVIR SODIUM [Suspect]
     Dates: start: 20110802, end: 20110817
  2. VALCYTE [Suspect]
     Indication: ENCEPHALITIS
     Dates: start: 20110817, end: 20110829
  3. GANCICLOVIR SODIUM [Suspect]
     Indication: ENCEPHALITIS
     Dates: start: 20110701, end: 20110715
  4. VALCYTE [Suspect]

REACTIONS (1)
  - PANCYTOPENIA [None]
